FAERS Safety Report 5988687-3 (Version None)
Quarter: 2008Q4

REPORT INFORMATION
  Report Type: 
  Country: None (occurrence: None)
  Receive Date: 20081210
  Receipt Date: 20081201
  Transmission Date: 20090506
  Serious: Yes (Other)
  Sender: FDA-Public Use
  Company Number: PHEH2008US10091

PATIENT
  Sex: Female

DRUGS (2)
  1. ELIDEL [Suspect]
     Indication: ECZEMA
     Dosage: UNK
     Route: 061
     Dates: start: 20020812, end: 20081101
  2. ELIDEL [Suspect]
     Indication: VITILIGO

REACTIONS (2)
  - DEPRESSION [None]
  - NERVOUSNESS [None]
